FAERS Safety Report 5792034-X (Version None)
Quarter: 2008Q2

REPORT INFORMATION
  Report Type: 
  Country: None (occurrence: None)
  Receive Date: 20080626
  Receipt Date: 20080613
  Transmission Date: 20081010
  Serious: Yes (Other)
  Sender: FDA-Public Use
  Company Number: PHHY2008NO10984

PATIENT
  Age: 25 Year
  Sex: Male

DRUGS (3)
  1. RITALIN [Suspect]
     Indication: ATTENTION DEFICIT/HYPERACTIVITY DISORDER
     Dosage: 20 MG
  2. RITALIN [Suspect]
     Dosage: 15 MG
  3. RITALIN [Suspect]
     Dosage: 10 MG

REACTIONS (1)
  - DEPRESSION [None]
